FAERS Safety Report 8192697-8 (Version None)
Quarter: 2012Q1

REPORT INFORMATION
  Report Type: 
  Country: None (occurrence: None)
  Receive Date: 20120308
  Receipt Date: 20120229
  Transmission Date: 20120608
  Serious: Yes (Hospitalization)
  Sender: FDA-Public Use
  Company Number: US-BAYER-2011-030200

PATIENT
  Age: 39 Year
  Sex: Female
  Weight: 74.83 kg

DRUGS (6)
  1. FLU VACCINE [Concomitant]
     Dosage: UNK
     Route: 030
     Dates: start: 20081124
  2. MECLIZINE [Concomitant]
     Indication: VERTIGO
     Dosage: UNK UNK, PRN
  3. ZOLOFT [Concomitant]
     Indication: DEPRESSION
     Dosage: 150 MG, UNK
     Route: 048
     Dates: start: 20030101
  4. AMBIEN [Concomitant]
     Indication: INSOMNIA
     Dosage: 5 MG, PRN
     Route: 048
     Dates: start: 20070101
  5. TETANUS VACCINE [Concomitant]
     Dosage: UNK
     Route: 030
     Dates: start: 20081124
  6. DROSPIRENONE AND ETHINYL ESTRADIOL [Suspect]
     Dosage: UNK
     Route: 048
     Dates: start: 20081125, end: 20081218

REACTIONS (6)
  - DYSPNOEA [None]
  - ANXIETY [None]
  - PAIN [None]
  - PULMONARY EMBOLISM [None]
  - ANHEDONIA [None]
  - INJURY [None]
